FAERS Safety Report 21774681 (Version 1)
Quarter: 2022Q4

REPORT INFORMATION
  Report Type: Spontaneous
  Country: US (occurrence: US)
  Receive Date: 20221224
  Receipt Date: 20221224
  Transmission Date: 20230113
  Serious: No
  Sender: FDA-Public Use
  Company Number: US-JNJFOC-20221242627

PATIENT
  Age: 53 Year
  Sex: Female

DRUGS (1)
  1. SIMPONI [Suspect]
     Active Substance: GOLIMUMAB
     Indication: Product used for unknown indication
     Dosage: SIMPONI SMARTJECT 50/0.5ML
     Route: 058
     Dates: start: 201808

REACTIONS (2)
  - Product dose omission issue [Unknown]
  - Sleep apnoea syndrome [Unknown]

NARRATIVE: CASE EVENT DATE: 20221212
